FAERS Safety Report 5401240-5 (Version None)
Quarter: 2007Q3

REPORT INFORMATION
  Report Type: 
  Country: None (occurrence: None)
  Receive Date: 20070731
  Receipt Date: 20070716
  Transmission Date: 20080115
  Serious: Yes (Other)
  Sender: FDA-Public Use
  Company Number: DE-AVENTIS-200113615DE

PATIENT
  Sex: Female
  Weight: 48 kg

DRUGS (3)
  1. RILUZOLE [Suspect]
     Indication: MULTIPLE SYSTEM ATROPHY
     Route: 048
     Dates: start: 20010331, end: 20010617
  2. RILUZOLE [Suspect]
     Route: 048
     Dates: start: 20010619, end: 20010622
  3. PRAMIPEXOLE DIHYDROCHLORIDE [Concomitant]
     Dates: start: 19990101

REACTIONS (6)
  - ALTERED STATE OF CONSCIOUSNESS [None]
  - CHILLS [None]
  - CONVULSION [None]
  - LOSS OF CONSCIOUSNESS [None]
  - OCULOGYRIC CRISIS [None]
  - VISUAL ACUITY REDUCED [None]
